FAERS Safety Report 16184245 (Version 2)
Quarter: 2019Q2

REPORT INFORMATION
  Report Type: Spontaneous
  Country: PL (occurrence: PL)
  Receive Date: 20190411
  Receipt Date: 20190417
  Transmission Date: 20190711
  Serious: Yes (Death, Other)
  Sender: FDA-Public Use
  Company Number: PL-PFIZER INC-2019150608

PATIENT
  Age: 80 Year
  Sex: Female

DRUGS (1)
  1. ECALTA [Suspect]
     Active Substance: ANIDULAFUNGIN
     Indication: SYSTEMIC MYCOSIS
     Dosage: 5 VIALS WITHIN 5 DAYS

REACTIONS (1)
  - Cardiovascular disorder [Fatal]
